FAERS Safety Report 11607220 (Version 4)
Quarter: 2016Q2

REPORT INFORMATION
  Report Type: Spontaneous
  Country: US (occurrence: US)
  Receive Date: 20151007
  Receipt Date: 20160406
  Transmission Date: 20160815
  Serious: No
  Sender: FDA-Public Use
  Company Number: US-PFIZER INC-2015332750

PATIENT
  Age: 65 Year
  Sex: Female

DRUGS (38)
  1. CRESTOR [Concomitant]
     Active Substance: ROSUVASTATIN CALCIUM
     Indication: BLOOD CHOLESTEROL ABNORMAL
     Dosage: 10 MG, 1X/DAY (1 AT BEDTIME )
     Route: 048
     Dates: start: 20141002
  2. ZOFRAN [Concomitant]
     Active Substance: ONDANSETRON HYDROCHLORIDE
     Dosage: 8 MG, AS NEEDED (1 TAB PO Q 8HRS; PRN)
     Route: 048
     Dates: start: 20130701
  3. TRAZODONE HYDROCHLORIDE. [Concomitant]
     Active Substance: TRAZODONE HYDROCHLORIDE
     Dosage: 150 MG TABS 2 TABLETS AT HS
     Dates: start: 20140410
  4. PROMETHAZINE HCL [Concomitant]
     Active Substance: PROMETHAZINE HYDROCHLORIDE
     Indication: NAUSEA
     Dosage: 25 MG, (EVERY 6-8 HRS) AS NEEDED
     Route: 048
     Dates: start: 20140723
  5. XARELTO [Concomitant]
     Active Substance: RIVAROXABAN
     Dosage: 15 MG, 2X/DAY
     Route: 048
     Dates: start: 20151229
  6. FUROSEMIDE. [Concomitant]
     Active Substance: FUROSEMIDE
     Dosage: 40 MG, DAILY
     Route: 048
     Dates: start: 20130130
  7. CYANOCOBALAMIN. [Concomitant]
     Active Substance: CYANOCOBALAMIN
     Dosage: 1000 UG, WEEKLY (THEN 1000MCG IM MONTHLY THEREAFTER)
     Route: 030
  8. COREG [Concomitant]
     Active Substance: CARVEDILOL
     Indication: BLOOD PRESSURE ABNORMAL
     Dosage: 25 MG, 1X/DAY (1 AT BEDTIME )
     Dates: start: 20111108
  9. LIORESAL [Concomitant]
     Active Substance: BACLOFEN
     Dosage: 10 MG, UNK
     Dates: start: 2010
  10. ACIDOPHILUS PROBIOTIC [Concomitant]
     Dosage: 1 DF, DAILY
     Route: 048
     Dates: start: 20150330
  11. MECLIZINE HCL [Concomitant]
     Dosage: 25 MG, AS NEEDED (THREE TIMES A DAY AS NEEDED)
     Route: 048
     Dates: start: 20151117
  12. LATANOPROST. [Concomitant]
     Active Substance: LATANOPROST
     Dosage: 1 GTT, DAILY (0.005 % SOLUTION ONE GTT OU QHS)
     Dates: start: 20140619
  13. VENTOLIN HFA [Concomitant]
     Active Substance: ALBUTEROL SULFATE
     Dosage: UNK, AS NEEDED (ONE PUFF BY MOUTH THREE TIMES A DAY AS NEEDED, 2 INHALERS PER MONTH)
     Dates: start: 20140122
  14. TYLENOL ARTHRITIS PAIN [Concomitant]
     Active Substance: ACETAMINOPHEN
     Dosage: 650 MG, UNK(2 BY MOUTH EVERY 6-8 HOURS)
     Route: 048
  15. CYANOCOBALAMIN. [Concomitant]
     Active Substance: CYANOCOBALAMIN
     Dosage: 1000 UG, MONTHLY (THEN 1000MCG IM MONTHLY THEREAFTER)
     Dates: start: 20140418
  16. LYRICA [Suspect]
     Active Substance: PREGABALIN
     Indication: FIBROMYALGIA
     Dosage: 200 MG, 3X/DAY
     Route: 048
     Dates: start: 20140728
  17. TOPAMAX [Concomitant]
     Active Substance: TOPIRAMATE
     Indication: SEIZURE
     Dosage: 200 MG, 2X/DAY
     Route: 048
     Dates: start: 20140512
  18. ERYTHROMYCIN. [Concomitant]
     Active Substance: ERYTHROMYCIN
     Indication: EYELID INJURY
     Dosage: 5 MG/G, 3X/DAY (TID TO EYELID WOUNDS FOR 1 WEEK)
     Dates: start: 20141006, end: 20141012
  19. FIORICET [Concomitant]
     Active Substance: ACETAMINOPHEN\BUTALBITAL\CAFFEINE
     Indication: HEADACHE
     Dosage: 1 DF, AS NEEDED (BUTALBITAL: 50MG; APAP: 300 MG; CAFFEINE: 40 MG) (EVERY 6 HRS AS NEEDED)
     Route: 048
     Dates: start: 20141024
  20. LASIX [Concomitant]
     Active Substance: FUROSEMIDE
     Dosage: 40 MG, DAILY
     Route: 048
     Dates: start: 20141229
  21. PERCOCET [Concomitant]
     Active Substance: ACETAMINOPHEN\OXYCODONE HYDROCHLORIDE
     Indication: PAIN
     Dosage: UNK MG, AS NEEDED (OXYCODONE10-ACETAMINOPHEN-325 1 TAB- BY MOUTH EVERY 6 HRS)
     Route: 048
     Dates: start: 20140117
  22. BACLOFEN. [Concomitant]
     Active Substance: BACLOFEN
     Dosage: 10 MG, 3X/DAY
     Route: 048
     Dates: start: 20140728
  23. OMEPRAZOLE. [Concomitant]
     Active Substance: OMEPRAZOLE
     Dosage: 40 MG, DAILY (ONE CAP BY MOUTH DAILY AS NEEDED)
     Route: 048
     Dates: start: 20140317
  24. VITAMIN D3 [Concomitant]
     Active Substance: CHOLECALCIFEROL
     Dosage: 1 DF, DAILY
     Route: 048
  25. MONTELUKAST SODIUM. [Concomitant]
     Active Substance: MONTELUKAST SODIUM
     Dosage: 10 MG, DAILY
     Route: 048
     Dates: start: 20141208
  26. VALIUM [Concomitant]
     Active Substance: DIAZEPAM
     Dosage: 05 MG, AS NEEDED (1 TAB BY MOUTH TWICE DAILY)
     Dates: start: 20131030
  27. ACETIC ACID. [Concomitant]
     Active Substance: ACETIC ACID
     Dosage: 1 DF, AS NEEDED (1 DROP EACH EAR DAILY)
     Route: 001
     Dates: start: 20140728
  28. METOLAZONE. [Concomitant]
     Active Substance: METOLAZONE
     Dosage: 5 MG, 1X/DAY
     Route: 048
     Dates: start: 20111108
  29. COQ10 [Concomitant]
     Active Substance: UBIDECARENONE
     Dosage: 1 DF, DAILY
     Route: 048
  30. BUTA APAP CAFF [Concomitant]
     Dosage: 50-325
     Dates: start: 2011
  31. PROMETHAZINE HCL [Concomitant]
     Active Substance: PROMETHAZINE HYDROCHLORIDE
     Dosage: 25 MG, (EVERY 8 HRS) AS NEEDED
     Route: 048
     Dates: start: 20151016
  32. ZYRTEC [Concomitant]
     Active Substance: CETIRIZINE HYDROCHLORIDE
     Dosage: 10 MG TABS ONE HALF TO ONE TAB DAILY
     Route: 048
     Dates: start: 20151229
  33. FISH OIL [Concomitant]
     Active Substance: FISH OIL
     Dosage: 1 DF, DAILY
  34. PLAVIX [Concomitant]
     Active Substance: CLOPIDOGREL BISULFATE
     Indication: CARDIAC DISORDER
     Dosage: 45 MG, 1X/DAY
  35. MAGNESIUM GLUCONATE [Concomitant]
     Active Substance: MAGNESIUM GLUCONATE
     Dosage: 500 MG, DAILY
     Route: 048
     Dates: start: 20140728
  36. KLOR-CON [Concomitant]
     Active Substance: POTASSIUM CHLORIDE
     Dosage: UNK MEQ, 2X/DAY (KLOR-10 CON 10)
     Route: 048
     Dates: start: 20140117
  37. OXYCODONE AND ACETAMINOPHEN [Concomitant]
     Active Substance: ACETAMINOPHEN\OXYCODONE HYDROCHLORIDE
     Dosage: 10/325
     Dates: start: 2010
  38. LOMOTIL [Concomitant]
     Active Substance: ATROPINE SULFATE\DIPHENOXYLATE HYDROCHLORIDE
     Dosage: 1 DF, 2X/DAY
     Route: 048
     Dates: start: 20150824

REACTIONS (1)
  - Ear pain [Recovered/Resolved]
